FAERS Safety Report 8769690 (Version 1)
Quarter: 2012Q4

REPORT INFORMATION
  Report Type: 
  Country: FR (occurrence: FR)
  Receive Date: 20120905
  Receipt Date: 20120905
  Transmission Date: 20130627
  Serious: Yes (Hospitalization)
  Sender: FDA-Public Use
  Company Number: FR-SANOFI-AVENTIS-2012SA062675

PATIENT
  Age: 17 Year
  Sex: Female

DRUGS (4)
  1. RIFADINE [Suspect]
     Indication: PERITONEAL TUBERCULOSIS
     Dosage: strength: 2%
     Route: 048
     Dates: start: 20120809
  2. PYRAZINAMIDE [Suspect]
     Indication: PERITONEAL TUBERCULOSIS
     Dosage: strength: 500mg
     Route: 048
     Dates: start: 20120809
  3. RIMIFON [Suspect]
     Indication: PERITONEAL TUBERCULOSIS
     Dosage: sterngth: 150mg
     Route: 048
     Dates: start: 20120809
  4. PYRIDOXINE HYDROCHLORIDE [Suspect]
     Indication: DRUG USE FOR UNKNOWN INDICATION
     Dosage: strength: 250mg
     Route: 048
     Dates: start: 20120813

REACTIONS (2)
  - Gynaecomastia [Unknown]
  - Galactorrhoea [Unknown]
